FAERS Safety Report 4424206-0 (Version None)
Quarter: 2004Q3

REPORT INFORMATION
  Report Type: 
  Country: None (occurrence: None)
  Receive Date: 20040812
  Receipt Date: 20040804
  Transmission Date: 20050211
  Serious: Yes (Death, Life-Threatening)
  Sender: FDA-Public Use
  Company Number: 200417685GDDC

PATIENT
  Age: 50 Year
  Sex: Female

DRUGS (3)
  1. KETEK [Suspect]
     Indication: OTITIS MEDIA
     Dosage: DOSE: UNK
     Dates: start: 20040730, end: 20040801
  2. ROCEPHIN [Concomitant]
     Route: 042
  3. GENTAMYCIN SULFATE [Concomitant]
     Route: 042

REACTIONS (5)
  - CARDIAC ARREST [None]
  - CEREBROVASCULAR ACCIDENT [None]
  - GALLBLADDER DISORDER [None]
  - MYDRIASIS [None]
  - PNEUMONIA STREPTOCOCCAL [None]
